FAERS Safety Report 8243802-6 (Version None)
Quarter: 2012Q1

REPORT INFORMATION
  Report Type: 
  Country: None (occurrence: None)
  Receive Date: 20120329
  Receipt Date: 20120123
  Transmission Date: 20120608
  Serious: No
  Sender: FDA-Public Use
  Company Number: US-MYLANLABS-2011S1025750

PATIENT
  Age: 48 Year
  Sex: Female

DRUGS (5)
  1. EMSAM [Suspect]
     Indication: DEPRESSION
     Dosage: QD
     Route: 062
     Dates: start: 20100101, end: 20111201
  2. TOPIRAMATE [Concomitant]
     Indication: MIGRAINE
     Route: 048
     Dates: end: 20111130
  3. LAMOTRGINE [Concomitant]
     Route: 048
     Dates: end: 20111130
  4. LEVOTHYROXINE SODIUM [Concomitant]
     Indication: HYPOTHYROIDISM
     Route: 048
  5. SEROQUEL [Concomitant]
     Indication: INSOMNIA
     Route: 048
     Dates: end: 20110901

REACTIONS (5)
  - DIZZINESS [None]
  - DRUG INEFFECTIVE [None]
  - DEPRESSION [None]
  - ORTHOSTATIC HYPOTENSION [None]
  - GAIT DISTURBANCE [None]
